FAERS Safety Report 6508034-8 (Version None)
Quarter: 2009Q4

REPORT INFORMATION
  Report Type: 
  Country: None (occurrence: None)
  Receive Date: 20091201
  Receipt Date: 20090827
  Transmission Date: 20100525
  Serious: Yes (Hospitalization)
  Sender: FDA-Public Use
  Company Number: 2009-194900-NL

PATIENT
  Age: 43 Year
  Sex: Female
  Weight: 94.8018 kg

DRUGS (12)
  1. NUVARING [Suspect]
     Indication: CONTRACEPTION
     Dosage: 1 DF
     Dates: start: 20030901, end: 20070615
  2. SULFAMETHOXAZOLE [Concomitant]
  3. FUROSEMIDE [Concomitant]
  4. CYMBALTA [Concomitant]
  5. VYTORIN [Concomitant]
  6. ADVAIR DISKUS 100/50 [Concomitant]
  7. ZYRTEC [Concomitant]
  8. POTASSIUM CHLORIDE [Concomitant]
  9. BENAZEPRIL HYDROCHLORIDE [Concomitant]
  10. PROCHLORPERAZINE [Concomitant]
  11. AMBIEN [Concomitant]
  12. DARVOCET-N 100 [Concomitant]

REACTIONS (2)
  - DEEP VEIN THROMBOSIS [None]
  - PULMONARY EMBOLISM [None]
